FAERS Safety Report 7969955-2 (Version None)
Quarter: 2011Q4

REPORT INFORMATION
  Report Type: 
  Country: None (occurrence: None)
  Receive Date: 20111212
  Receipt Date: 20111201
  Transmission Date: 20120403
  Serious: Yes (Other)
  Sender: FDA-Public Use
  Company Number: ES-TEVA-312553ISR

PATIENT
  Age: 61 Year
  Sex: Male

DRUGS (1)
  1. ENALAPRIL MALEATE [Suspect]
     Indication: HYPERTENSION
     Dosage: 20 MILLIGRAM;
     Route: 048
     Dates: start: 20111001, end: 20111030

REACTIONS (1)
  - GOUT [None]
